FAERS Safety Report 11816563 (Version 1)
Quarter: 2015Q4

REPORT INFORMATION
  Report Type: Report from Study
  Country: US (occurrence: US)
  Receive Date: 20151210
  Receipt Date: 20151210
  Transmission Date: 20160305
  Serious: Yes (Other)
  Sender: FDA-Public Use
  Company Number: US-AMGEN-USASL2015130843

PATIENT
  Age: 59 Year
  Sex: Female

DRUGS (1)
  1. ENBREL [Suspect]
     Active Substance: ETANERCEPT
     Indication: RHEUMATOID ARTHRITIS
     Dosage: UNK
     Route: 065
     Dates: start: 20151027

REACTIONS (11)
  - Malaise [Recovering/Resolving]
  - Injection site reaction [Unknown]
  - Injection site pruritus [Recovered/Resolved]
  - Decreased appetite [Not Recovered/Not Resolved]
  - Pain [Recovered/Resolved]
  - Rheumatoid arthritis [Recovering/Resolving]
  - Injection site swelling [Unknown]
  - Injection site erythema [Unknown]
  - Nausea [Not Recovered/Not Resolved]
  - Injection site pain [Unknown]
  - Dysgeusia [Recovering/Resolving]

NARRATIVE: CASE EVENT DATE: 20151123
